FAERS Safety Report 5385248-4 (Version None)
Quarter: 2007Q3

REPORT INFORMATION
  Report Type: 
  Country: None (occurrence: None)
  Receive Date: 20070709
  Receipt Date: 20070628
  Transmission Date: 20080115
  Serious: Yes (Other)
  Sender: FDA-Public Use
  Company Number: 2007SP012877

PATIENT
  Sex: Male
  Weight: 83.9154 kg

DRUGS (3)
  1. PEG-INTRON [Suspect]
     Indication: HEPATITIS C
     Dates: end: 20070620
  2. REBETOL [Suspect]
     Indication: HEPATITIS C
     Dosage: PO
     Route: 048
     Dates: end: 20070620
  3. METHADONE /00068902/ [Concomitant]

REACTIONS (12)
  - ANAEMIA [None]
  - APNOEA [None]
  - DEHYDRATION [None]
  - DYSPNOEA [None]
  - INCORRECT DOSE ADMINISTERED [None]
  - INFLUENZA LIKE ILLNESS [None]
  - NAIL DISCOLOURATION [None]
  - NAUSEA [None]
  - RESPIRATORY DISORDER [None]
  - SKIN DISCOLOURATION [None]
  - VOMITING [None]
  - WEIGHT DECREASED [None]
